FAERS Safety Report 5492916-2 (Version None)
Quarter: 2007Q4

REPORT INFORMATION
  Report Type: 
  Country: None (occurrence: None)
  Receive Date: 20071023
  Receipt Date: 20071011
  Transmission Date: 20080405
  Serious: Yes (Hospitalization)
  Sender: FDA-Public Use
  Company Number: FR-BAYER-200710573BFR

PATIENT
  Age: 42 Year
  Sex: Male

DRUGS (8)
  1. IZILOX [Suspect]
     Indication: TUBERCULOSIS
     Route: 048
     Dates: start: 20070912
  2. IZILOX [Suspect]
     Route: 048
     Dates: start: 20070831, end: 20070908
  3. RIMIFON [Suspect]
     Indication: TUBERCULOSIS
     Route: 048
     Dates: start: 20070825
  4. RIMIFON [Suspect]
     Route: 048
     Dates: start: 20070912
  5. MYAMBUTOL [Concomitant]
     Indication: TUBERCULOSIS
     Route: 048
     Dates: start: 20070825
  6. RIFADIN [Concomitant]
     Indication: TUBERCULOSIS
     Route: 048
     Dates: start: 20070825, end: 20070831
  7. PIRILENE [Concomitant]
     Indication: TUBERCULOSIS
     Route: 048
     Dates: start: 20070825
  8. LOVENOX [Concomitant]
     Indication: PROPHYLAXIS
     Route: 058
     Dates: start: 20070825, end: 20070831

REACTIONS (2)
  - CONVULSION [None]
  - ELECTROENCEPHALOGRAM ABNORMAL [None]
